FAERS Safety Report 4514552-4 (Version None)
Quarter: 2004Q4

REPORT INFORMATION
  Report Type: 
  Country: None (occurrence: None)
  Receive Date: 20040928
  Receipt Date: 20040805
  Transmission Date: 20050328
  Serious: Yes (Hospitalization)
  Sender: FDA-Public Use
  Company Number: 04P-163-0269419-00

PATIENT
  Age: 42 Year
  Sex: Male
  Weight: 117.9352 kg

DRUGS (4)
  1. HUMIRA [Suspect]
     Indication: RHEUMATOID ARTHRITIS
     Dosage: SEE IMAGE
     Route: 058
     Dates: start: 20030401, end: 20040101
  2. HUMIRA [Suspect]
     Indication: RHEUMATOID ARTHRITIS
     Dosage: SEE IMAGE
     Route: 058
     Dates: start: 20040101, end: 20040201
  3. HUMIRA [Suspect]
     Indication: RHEUMATOID ARTHRITIS
     Dosage: SEE IMAGE
     Route: 058
     Dates: start: 20040201, end: 20040716
  4. VICODIN [Concomitant]

REACTIONS (6)
  - DIARRHOEA [None]
  - HALLUCINATION [None]
  - INSOMNIA [None]
  - PNEUMONIA [None]
  - VOMITING [None]
  - WEIGHT DECREASED [None]
